FAERS Safety Report 8387314-8 (Version None)
Quarter: 2012Q2

REPORT INFORMATION
  Report Type: 
  Country: None (occurrence: None)
  Receive Date: 20120525
  Receipt Date: 20120515
  Transmission Date: 20120825
  Serious: Yes (Other)
  Sender: FDA-Public Use
  Company Number: FR-NOVOPROD-351339

PATIENT
  Age: 26 Year
  Sex: Female

DRUGS (6)
  1. AMARYL [Suspect]
     Dosage: 5 MG, QD
     Route: 048
     Dates: end: 20110209
  2. VICTOZA [Suspect]
     Indication: GESTATIONAL DIABETES
     Dosage: 1.8 MG, QD
     Route: 058
     Dates: end: 20110209
  3. INSULATARD NPH HUMAN [Suspect]
     Dosage: 40 UNK, QD
     Route: 058
     Dates: start: 20110210, end: 20110816
  4. INSULATARD NPH HUMAN [Suspect]
     Indication: GESTATIONAL DIABETES
     Dosage: 18 U, QD
     Route: 058
     Dates: end: 20110209
  5. GLUCOPHAGE [Suspect]
     Dosage: 2 MG, QD
     Route: 048
     Dates: end: 20110209
  6. NOVORAPID [Suspect]
     Indication: GESTATIONAL DIABETES
     Dosage: 24 TO 54U
     Route: 058
     Dates: end: 20110816

REACTIONS (4)
  - BLOOD GLUCOSE ABNORMAL [None]
  - HYPOGLYCAEMIA [None]
  - MATERNAL EXPOSURE DURING PREGNANCY [None]
  - FOETAL DEATH [None]
